FAERS Safety Report 11099109 (Version 1)
Quarter: 2015Q2

REPORT INFORMATION
  Report Type: Spontaneous
  Country: US (occurrence: None)
  Receive Date: 20150506
  Receipt Date: 20150506
  Transmission Date: 20150821
  Serious: Yes (Other)
  Sender: FDA-Public Use
  Company Number: FK201502034

PATIENT
  Age: 65 Year
  Sex: Male

DRUGS (2)
  1. FLUOROURACIL (MANUFACTURER UNKNOWN) (FLUOROURACIL) (FLUOROURACIL) [Suspect]
     Active Substance: FLUOROURACIL
     Indication: OESOPHAGEAL ADENOCARCINOMA
     Dosage: CYCLICAL
  2. CISPLATIN (MANUFACTURER UNKNOWN) (CISPLATIN) (CISPLATIN) [Suspect]
     Active Substance: CISPLATIN
     Indication: OESOPHAGEAL ADENOCARCINOMA
     Dosage: CYCLICAL

REACTIONS (11)
  - Malnutrition [None]
  - Anaemia [None]
  - Weight decreased [None]
  - Pseudomonas test positive [None]
  - Hydronephrosis [None]
  - Dehydration [None]
  - Acute kidney injury [None]
  - Urinary tract infection [None]
  - Dysphagia [None]
  - Mental status changes [None]
  - Hydrocephalus [None]
